FAERS Safety Report 9441517 (Version 1)
Quarter: 2013Q3

REPORT INFORMATION
  Report Type: Spontaneous
  Country: FR (occurrence: FR)
  Receive Date: 20130805
  Receipt Date: 20130805
  Transmission Date: 20140515
  Serious: Yes (Hospitalization)
  Sender: FDA-Public Use
  Company Number: FR-ROCHE-1256873

PATIENT
  Age: 82 Year
  Sex: Female

DRUGS (11)
  1. RIVOTRIL [Suspect]
     Indication: EPILEPSY
     Route: 048
     Dates: end: 20120913
  2. TERALITHE [Suspect]
     Indication: BIPOLAR I DISORDER
     Route: 048
     Dates: end: 20120920
  3. TERALITHE [Suspect]
     Dosage: 400 MG
     Route: 048
     Dates: end: 20120920
  4. DEPAKINE [Suspect]
     Indication: EPILEPSY
     Route: 048
  5. DEPAKINE [Suspect]
     Route: 048
     Dates: start: 20120913
  6. THERALENE (FRANCE) [Concomitant]
     Route: 048
     Dates: end: 20120913
  7. TAMOXIFENE [Concomitant]
     Indication: BREAST CANCER
     Route: 048
     Dates: start: 2012, end: 20120920
  8. ARIMIDEX [Concomitant]
     Indication: BREAST CANCER
     Route: 048
  9. LEPONEX [Concomitant]
     Indication: BIPOLAR I DISORDER
     Route: 065
  10. ANAFRANIL [Concomitant]
     Indication: BIPOLAR I DISORDER
     Route: 048
  11. LEVOTHYROX [Concomitant]
     Indication: HYPOTHYROIDISM
     Route: 048

REACTIONS (1)
  - Epilepsy [Recovered/Resolved]
